FAERS Safety Report 5196562-X (Version None)
Quarter: 2006Q4

REPORT INFORMATION
  Report Type: 
  Country: None (occurrence: None)
  Receive Date: 20061222
  Receipt Date: 20061208
  Transmission Date: 20070319
  Serious: Yes (Hospitalization)
  Sender: FDA-Public Use
  Company Number: 8020810

PATIENT
  Age: 50 Year
  Sex: Female

DRUGS (2)
  1. KEPPRA [Suspect]
     Indication: CONVULSION
     Dosage: 1500 MG 2/D
  2. GABAPENTIN [Suspect]
     Indication: CONVULSION
     Dosage: 2.4 G

REACTIONS (2)
  - CROHN'S DISEASE [None]
  - ILEUS [None]
